FAERS Safety Report 11330392 (Version 1)
Quarter: 2015Q3

REPORT INFORMATION
  Report Type: Report from Study
  Country: US (occurrence: US)
  Receive Date: 20150803
  Receipt Date: 20150803
  Transmission Date: 20151125
  Serious: Yes (Other)
  Sender: FDA-Public Use
  Company Number: US-ABBVIE-15K-163-1435424-00

PATIENT
  Sex: Female

DRUGS (1)
  1. HUMIRA [Suspect]
     Active Substance: ADALIMUMAB
     Indication: RHEUMATOID ARTHRITIS
     Route: 065
     Dates: start: 20130412

REACTIONS (5)
  - Insomnia [Unknown]
  - Impaired healing [Not Recovered/Not Resolved]
  - Joint range of motion decreased [Unknown]
  - Rotator cuff syndrome [Not Recovered/Not Resolved]
  - Muscle strain [Unknown]
